FAERS Safety Report 10740832 (Version 1)
Quarter: 2015Q1

REPORT INFORMATION
  Report Type: Spontaneous
  Country: IT (occurrence: None)
  Receive Date: 20150123
  Receipt Date: 20150123
  Transmission Date: 20150721
  Serious: Yes (Other)
  Sender: FDA-Public Use
  Company Number: 2707985

PATIENT

DRUGS (3)
  1. FLUOROURACIL. [Suspect]
     Active Substance: FLUOROURACIL
     Indication: NEUROENDOCRINE CARCINOMA
     Dosage: 500 MG/M 2 MILLIGRAM (S)/SQ. METER, 1 DAY
  2. EPIRUBICIN HYDROCHLORIDE. [Suspect]
     Active Substance: EPIRUBICIN HYDROCHLORIDE
     Indication: NEUROENDOCRINE CARCINOMA
     Dosage: 30 MG/M 2 MILLIGRAM (S)/SQ. METER, 1 DAY
  3. TEMOZOLOMIDE. [Suspect]
     Active Substance: TEMOZOLOMIDE
     Indication: NEUROENDOCRINE CARCINOMA
     Dosage: 200 MG/M2 MILLIGRAM(S)/SQ. METER( 1 DAY)

REACTIONS (4)
  - Myocardial infarction [None]
  - Toxicity to various agents [None]
  - Rash [None]
  - Renal failure [None]
